FAERS Safety Report 9705867 (Version 2)
Quarter: 2013Q4

REPORT INFORMATION
  Report Type: Report from Study
  Country: US (occurrence: US)
  Receive Date: 20131122
  Receipt Date: 20131129
  Transmission Date: 20140711
  Serious: Yes (Hospitalization)
  Sender: FDA-Public Use
  Company Number: US-ASTRAZENECA-2013SE84368

PATIENT
  Age: 981 Month
  Sex: Female
  Weight: 82.1 kg

DRUGS (5)
  1. CRESTOR [Suspect]
     Indication: BLOOD CHOLESTEROL INCREASED
     Route: 048
     Dates: start: 2010, end: 201309
  2. CRESTOR [Suspect]
     Indication: BLOOD CHOLESTEROL INCREASED
     Route: 048
     Dates: start: 20131112
  3. CRESTOR [Suspect]
     Indication: BLOOD CHOLESTEROL INCREASED
     Route: 048
     Dates: start: 201311
  4. LOVAZA [Concomitant]
  5. ZETIA [Concomitant]

REACTIONS (12)
  - Sensory loss [Recovering/Resolving]
  - Dysstasia [Unknown]
  - Pain in extremity [Unknown]
  - Muscle tightness [Unknown]
  - Muscle disorder [Unknown]
  - Myalgia [Unknown]
  - Mobility decreased [Unknown]
  - Fatigue [Unknown]
  - Blood creatine phosphokinase increased [Unknown]
  - Rash [Unknown]
  - Blood cholesterol increased [Unknown]
  - Drug dose omission [Unknown]
